FAERS Safety Report 7319661-2 (Version None)
Quarter: 2011Q1

REPORT INFORMATION
  Report Type: 
  Country: None (occurrence: None)
  Receive Date: 20110228
  Receipt Date: 20100708
  Transmission Date: 20110831
  Serious: Yes (Other)
  Sender: FDA-Public Use
  Company Number: A0869247A

PATIENT
  Age: 2 Year
  Sex: Male

DRUGS (4)
  1. VITAMINS + MINERALS [Concomitant]
  2. LAMICTAL [Suspect]
     Indication: EPILEPSY
     Dosage: 5MG SEE DOSAGE TEXT
     Route: 048
     Dates: start: 20100616
  3. KLONOPIN [Concomitant]
  4. DEPAKOTE [Concomitant]

REACTIONS (1)
  - CONVULSION [None]
